FAERS Safety Report 8463341-7 (Version None)
Quarter: 2012Q2

REPORT INFORMATION
  Report Type: 
  Country: None (occurrence: None)
  Receive Date: 20120625
  Receipt Date: 20120611
  Transmission Date: 20120825
  Serious: No
  Sender: FDA-Public Use
  Company Number: US-B.I. PHARMACEUTICALS,INC./RIDGEFIELD-2012-BP-13488BP

PATIENT
  Sex: Female

DRUGS (7)
  1. BENEFIBER [Concomitant]
     Indication: CONSTIPATION
     Route: 048
  2. ASPIRIN [Concomitant]
     Indication: PROPHYLAXIS
     Dosage: 81 MG
     Route: 048
     Dates: start: 20110101
  3. BYSTOLIC [Concomitant]
     Indication: HYPERTENSION
     Route: 048
     Dates: start: 20110101
  4. CATAPRES-TTS-1 [Suspect]
     Indication: HYPERTENSION
     Dosage: 0.1 MG
     Route: 061
     Dates: start: 20120120
  5. ARIMIDEX [Concomitant]
     Indication: BREAST CANCER
     Dosage: 1 MG
     Route: 048
     Dates: start: 20100308
  6. AVAPRO [Concomitant]
     Indication: HYPERTENSION
     Dosage: 75 MG
     Route: 048
     Dates: start: 20110101
  7. LORAZEPAM [Concomitant]
     Indication: ANXIETY
     Dosage: 1.5 MG
     Route: 048
     Dates: start: 20090101

REACTIONS (1)
  - BLOOD PRESSURE INCREASED [None]
